FAERS Safety Report 14379556 (Version 1)
Quarter: 2018Q1

REPORT INFORMATION
  Report Type: Spontaneous
  Country: FR (occurrence: FR)
  Receive Date: 20180112
  Receipt Date: 20180112
  Transmission Date: 20180509
  Serious: Yes (Other)
  Sender: FDA-Public Use
  Company Number: FR-CIPLA LTD.-2017FR31152

PATIENT

DRUGS (3)
  1. LAMOTRIGINE. [Suspect]
     Active Substance: LAMOTRIGINE
     Dosage: UNK
     Route: 064
  2. URBANYL 5 MG, GELULE [Suspect]
     Active Substance: CLOBAZAM
     Dosage: UNK
     Route: 064
     Dates: end: 20140517
  3. DEPAKINE [Suspect]
     Active Substance: VALPROATE SODIUM
     Dosage: UNK
     Route: 064

REACTIONS (6)
  - Emotional disorder [Not Recovered/Not Resolved]
  - Psychomotor retardation [Not Recovered/Not Resolved]
  - Cognitive disorder [Not Recovered/Not Resolved]
  - Maternal drugs affecting foetus [None]
  - Foetal exposure during pregnancy [Unknown]
  - Speech disorder developmental [Not Recovered/Not Resolved]
